FAERS Safety Report 5003992-5 (Version None)
Quarter: 2006Q2

REPORT INFORMATION
  Report Type: 
  Country: None (occurrence: None)
  Receive Date: 20060517
  Receipt Date: 20060509
  Transmission Date: 20061013
  Serious: Yes (Hospitalization)
  Sender: FDA-Public Use
  Company Number: US-JNJFOC-20051200147

PATIENT
  Sex: Male
  Weight: 74.84 kg

DRUGS (6)
  1. REMICADE [Suspect]
     Route: 042
  2. REMICADE [Suspect]
     Route: 042
  3. REMICADE [Suspect]
     Route: 042
  4. REMICADE [Suspect]
     Route: 042
  5. REMICADE [Suspect]
     Indication: CROHN'S DISEASE
     Route: 042
  6. 6-MP [Concomitant]
     Dosage: X4-5YRS

REACTIONS (5)
  - COLITIS [None]
  - GASTROINTESTINAL INFECTION [None]
  - RASH [None]
  - SWELLING FACE [None]
  - THERAPEUTIC RESPONSE DECREASED [None]
